FAERS Safety Report 9414621 (Version 1)
Quarter: 2013Q3

REPORT INFORMATION
  Report Type: Spontaneous
  Country: US (occurrence: US)
  Receive Date: 20130723
  Receipt Date: 20130723
  Transmission Date: 20140515
  Serious: Yes (Hospitalization, Other)
  Sender: FDA-Public Use
  Company Number: 2013SP003552

PATIENT
  Age: 12 Year
  Sex: Male
  Weight: 72.3 kg

DRUGS (24)
  1. CYTARABINE [Suspect]
     Indication: PRODUCT USED FOR UNKNOWN INDICATION
     Route: 042
  2. VANCOMYCIN [Suspect]
  3. DALTEPARIN SODIUM [Suspect]
     Indication: DEEP VEIN THROMBOSIS
     Route: 058
     Dates: start: 20130301
  4. DALTEPARIN SODIUM [Suspect]
     Indication: DEEP VEIN THROMBOSIS
     Route: 058
  5. CALCIUM CARBONATE [Concomitant]
     Route: 048
  6. ONDANSETRON HYDROCHLORIDE [Concomitant]
     Route: 048
  7. DOCUSATE SODIUM [Concomitant]
     Route: 048
  8. MACROGOL [Concomitant]
     Route: 048
  9. PREDNISONE [Concomitant]
     Route: 048
  10. RANITIDINE HYDROCHLORIDE [Concomitant]
     Route: 048
  11. SENNA ALEXANDRINA FRUIT [Concomitant]
     Route: 048
  12. SULFAMETHOXAZOLE [Concomitant]
     Route: 048
  13. TRIMETHOPRIM [Concomitant]
     Route: 048
  14. MORPHINE [Concomitant]
     Route: 048
  15. PANTOPRAZOLE [Concomitant]
     Route: 048
  16. PREDNISOLONE [Concomitant]
  17. VORICONAZOLE [Concomitant]
     Route: 048
  18. PARACETAMOL [Concomitant]
     Route: 048
  19. DIPHENHYDRAMINE HYDROCHLORIDE [Concomitant]
     Route: 042
  20. LORAZEPAM [Concomitant]
     Route: 042
  21. LINEZOLID [Concomitant]
  22. CEFEPIME [Concomitant]
  23. AZITHROMYCIN [Concomitant]
  24. METRONIDAZOLE [Concomitant]

REACTIONS (21)
  - Respiratory distress [Recovered/Resolved]
  - Hypoxia [Recovered/Resolved]
  - Pancreatitis [Unknown]
  - Pyrexia [Recovered/Resolved]
  - Abdominal pain [Unknown]
  - Venous thrombosis [Unknown]
  - Pleural effusion [Unknown]
  - Red man syndrome [Unknown]
  - Rash [Recovering/Resolving]
  - Metastasis [Unknown]
  - Hypotension [Recovered/Resolved]
  - Aspergillus infection [Unknown]
  - Nasopharyngitis [Recovered/Resolved]
  - Tachycardia [Recovered/Resolved]
  - Diarrhoea [Unknown]
  - Pallor [Unknown]
  - Hyperhidrosis [Unknown]
  - Heart rate increased [Recovered/Resolved]
  - Thrombocytopenia [Unknown]
  - Tenderness [Unknown]
  - Nasopharyngitis [Unknown]
